FAERS Safety Report 5742645-2 (Version None)
Quarter: 2008Q2

REPORT INFORMATION
  Report Type: 
  Country: None (occurrence: None)
  Receive Date: 20080515
  Receipt Date: 20080515
  Transmission Date: 20081010
  Serious: Yes (Hospitalization)
  Sender: FDA-Public Use
  Company Number: None

PATIENT
  Sex: Female
  Weight: 67.9 kg

DRUGS (10)
  1. BONIVA [Suspect]
     Indication: OSTEOPOROSIS
     Dosage: 3MG Q3 MONTHS IV
     Route: 042
     Dates: start: 20080411
  2. VITAMIN B-12 [Concomitant]
  3. PRILOSEC [Concomitant]
  4. PREDNISONE TAB [Concomitant]
  5. LIPITOR [Concomitant]
  6. COREG [Concomitant]
  7. VIT D [Concomitant]
  8. CALCIUM [Concomitant]
  9. LISINOPRIL [Concomitant]
  10. STOOL SOFTENER [Concomitant]

REACTIONS (1)
  - ATRIAL FIBRILLATION [None]
